FAERS Safety Report 8286345-6 (Version None)
Quarter: 2012Q2

REPORT INFORMATION
  Report Type: 
  Country: None (occurrence: None)
  Receive Date: 20120416
  Receipt Date: 20120412
  Transmission Date: 20120825
  Serious: No
  Sender: FDA-Public Use
  Company Number: US-PFIZER INC-2012092744

PATIENT
  Sex: Female
  Weight: 79.365 kg

DRUGS (9)
  1. SEROQUEL [Concomitant]
     Indication: DEPRESSION
     Dosage: 50 MG, DAILY
  2. OXYCODONE [Concomitant]
     Indication: PAIN
     Dosage: 30 MG A MAXIMUM OF UP TO SEVEN TIMES A DAY
  3. LEVOTHROID [Concomitant]
     Indication: THYROID DISORDER
     Dosage: 200 UG, 2X/DAY
  4. WELLBUTRIN [Concomitant]
     Indication: DEPRESSION
     Dosage: 450 MG, DAILY
  5. LEXAPRO [Concomitant]
     Indication: DEPRESSION
     Dosage: 20 MG, DAILY
  6. CHANTIX [Suspect]
     Dosage: 0.5MG, DAILY
  7. CHANTIX [Suspect]
     Indication: SMOKING CESSATION THERAPY
     Dosage: 0.5 MG, DAILY
  8. OXYCONTIN [Concomitant]
     Indication: PAIN
     Dosage: 80 MG, 6X/DAY
  9. SEROQUEL [Concomitant]
     Indication: SLEEP DISORDER

REACTIONS (4)
  - DRUG INEFFECTIVE [None]
  - TOBACCO USER [None]
  - EXPIRED DRUG ADMINISTERED [None]
  - THERAPEUTIC RESPONSE UNEXPECTED [None]
